FAERS Safety Report 7525801-2 (Version None)
Quarter: 2011Q2

REPORT INFORMATION
  Report Type: 
  Country: None (occurrence: None)
  Receive Date: 20110606
  Receipt Date: 20110304
  Transmission Date: 20111010
  Serious: No
  Sender: FDA-Public Use
  Company Number: A0917847A

PATIENT
  Age: 45 Year
  Sex: Male

DRUGS (1)
  1. LAMICTAL [Suspect]
     Dosage: 100MG TWICE PER DAY
     Route: 065

REACTIONS (3)
  - VISION BLURRED [None]
  - ABNORMAL DREAMS [None]
  - POLLAKIURIA [None]
